APPROVED DRUG PRODUCT: MORPHINE SULFATE
Active Ingredient: MORPHINE SULFATE
Strength: 50MG
Dosage Form/Route: CAPSULE, EXTENDED RELEASE;ORAL
Application: A202104 | Product #004
Applicant: UPSHER SMITH LABORATORIES LLC
Approved: Jun 3, 2013 | RLD: No | RS: No | Type: RX